FAERS Safety Report 21629313 (Version 1)
Quarter: 2022Q4

REPORT INFORMATION
  Report Type: Report from Study
  Country: US (occurrence: US)
  Receive Date: 20221122
  Receipt Date: 20221122
  Transmission Date: 20230113
  Serious: No
  Sender: FDA-Public Use
  Company Number: US-ABBVIE-4209302

PATIENT
  Sex: Female

DRUGS (1)
  1. IMBRUVICA [Suspect]
     Active Substance: IBRUTINIB
     Indication: Chronic lymphocytic leukaemia
     Route: 048
     Dates: start: 202210

REACTIONS (4)
  - Blood test abnormal [Unknown]
  - Haemoglobin decreased [Recovered/Resolved]
  - Abdominal discomfort [Unknown]
  - Decreased appetite [Recovered/Resolved]
